FAERS Safety Report 5541568-1 (Version None)
Quarter: 2007Q4

REPORT INFORMATION
  Report Type: 
  Country: None (occurrence: None)
  Receive Date: 20071210
  Receipt Date: 20071128
  Transmission Date: 20080405
  Serious: Yes (Other)
  Sender: FDA-Public Use
  Company Number: PHHY2007CL00672

PATIENT
  Age: 1 Day
  Sex: Male
  Weight: 3.55 kg

DRUGS (1)
  1. TAREG D [Suspect]
     Indication: HYPERTENSION
     Route: 064

REACTIONS (2)
  - DRUG EXPOSURE DURING PREGNANCY [None]
  - IMPETIGO [None]
